FAERS Safety Report 6709652-4 (Version None)
Quarter: 2010Q2

REPORT INFORMATION
  Report Type: 
  Country: None (occurrence: None)
  Receive Date: 20100430
  Receipt Date: 20100415
  Transmission Date: 20101027
  Serious: Yes (Other)
  Sender: FDA-Public Use
  Company Number: MOZO-1000244

PATIENT
  Age: 55 Year
  Sex: Male
  Weight: 64 kg

DRUGS (8)
  1. MOZOBIL [Suspect]
     Indication: HAEMATOPOIETIC STEM CELL MOBILISATION
     Dosage: 0.82 ML, ONCE,
     Dates: start: 20090511, end: 20090511
  2. MOZOBIL [Suspect]
     Indication: MULTIPLE MYELOMA
     Dosage: 0.82 ML, ONCE,
     Dates: start: 20090511, end: 20090511
  3. PAMIDRONATE DISODIUM [Concomitant]
  4. MORPHINE SULFATE [Concomitant]
  5. VFEND [Concomitant]
  6. TRIMETHOPRIM-SULFAMETHOXAZOLE [Concomitant]
  7. OMEPRAZOL (OMEPRAZOLE MAGNESIUM) [Concomitant]
  8. MELPHALAN HYDROCHLORIDE [Concomitant]

REACTIONS (5)
  - MALIGNANT NEOPLASM PROGRESSION [None]
  - MULTIPLE MYELOMA [None]
  - PANCYTOPENIA [None]
  - STEM CELL TRANSPLANT [None]
  - TRANSPLANT FAILURE [None]
